FAERS Safety Report 9429144 (Version 1)
Quarter: 2013Q3

REPORT INFORMATION
  Report Type: Spontaneous
  Country: FR (occurrence: FR)
  Receive Date: 20130730
  Receipt Date: 20130730
  Transmission Date: 20140515
  Serious: Yes (Other)
  Sender: FDA-Public Use
  Company Number: FR-JNJFOC-20130711903

PATIENT
  Age: 31 Year
  Sex: Male

DRUGS (2)
  1. CONCERTA [Suspect]
     Indication: PRODUCT USED FOR UNKNOWN INDICATION
     Route: 048
  2. CONCERTA [Suspect]
     Indication: PRODUCT USED FOR UNKNOWN INDICATION
     Route: 048

REACTIONS (7)
  - Delirium [Unknown]
  - Poor quality drug administered [Unknown]
  - Incorrect product storage [Unknown]
  - Drug ineffective [Unknown]
  - Off label use [Unknown]
  - Agitation [Unknown]
  - Product colour issue [Unknown]
